FAERS Safety Report 25456398 (Version 2)
Quarter: 2025Q3

REPORT INFORMATION
  Report Type: Report from Study
  Country: US (occurrence: US)
  Receive Date: 20250619
  Receipt Date: 20250808
  Transmission Date: 20251021
  Serious: Yes (Other)
  Sender: EMD SERONO INC
  Company Number: US-Merck Healthcare KGaA-2025029901

PATIENT
  Sex: Female

DRUGS (2)
  1. MAVENCLAD [Suspect]
     Active Substance: CLADRIBINE
     Indication: Multiple sclerosis
     Dates: start: 20240822, end: 20240826
  2. MAVENCLAD [Suspect]
     Active Substance: CLADRIBINE

REACTIONS (8)
  - White blood cell count decreased [Unknown]
  - Near death experience [Unknown]
  - Urinary tract infection [Unknown]
  - Sepsis [Unknown]
  - Alopecia [Unknown]
  - Condition aggravated [Unknown]
  - Gait disturbance [Unknown]
  - Motor dysfunction [Unknown]
